FAERS Safety Report 11778137 (Version 2)
Quarter: 2016Q1

REPORT INFORMATION
  Report Type: Spontaneous
  Country: DE (occurrence: DE)
  Receive Date: 20151125
  Receipt Date: 20160115
  Transmission Date: 20160525
  Serious: Yes (Other)
  Sender: FDA-Public Use
  Company Number: DE-OTSUKA-2015_015079

PATIENT
  Age: 3 Year

DRUGS (1)
  1. BUSULFAN [Suspect]
     Active Substance: BUSULFAN
     Indication: STEM CELL TRANSPLANT
     Dosage: 4 MG/KG, QD (1/DAY)
     Route: 065

REACTIONS (3)
  - Bacterial infection [Recovered/Resolved]
  - Transplant failure [Unknown]
  - Autoimmune haemolytic anaemia [Recovered/Resolved]
